FAERS Safety Report 10145467 (Version 2)
Quarter: 2014Q2

REPORT INFORMATION
  Report Type: Spontaneous
  Country: US (occurrence: US)
  Receive Date: 20140501
  Receipt Date: 20140523
  Transmission Date: 20141212
  Serious: Yes (Other)
  Sender: FDA-Public Use
  Company Number: US-AMGEN-USASP2014031119

PATIENT
  Age: 60 Year
  Sex: Female
  Weight: 65.76 kg

DRUGS (2)
  1. ENBREL [Suspect]
     Indication: PSORIASIS
     Dosage: 50 MG, QWK
     Route: 065
     Dates: start: 2011, end: 201404
  2. HUMIRA [Concomitant]
     Dosage: UNK

REACTIONS (1)
  - Ovarian cancer [Not Recovered/Not Resolved]
